FAERS Safety Report 24212324 (Version 1)
Quarter: 2024Q3

REPORT INFORMATION
  Report Type: Spontaneous
  Country: US (occurrence: US)
  Receive Date: 20240815
  Receipt Date: 20240815
  Transmission Date: 20241017
  Serious: No
  Sender: DR REDDYS
  Company Number: US-E2BLSMVVAL-SPO/USA/24/0011677

PATIENT
  Age: 34 Year
  Sex: Female

DRUGS (2)
  1. ZENATANE [Suspect]
     Active Substance: ISOTRETINOIN
     Indication: Acne
  2. CLINDAMYCIN [Concomitant]
     Active Substance: CLINDAMYCIN
     Indication: Product used for unknown indication

REACTIONS (1)
  - Therapy cessation [Unknown]

NARRATIVE: CASE EVENT DATE: 20240806
